FAERS Safety Report 7995880-7 (Version None)
Quarter: 2011Q4

REPORT INFORMATION
  Report Type: 
  Country: None (occurrence: None)
  Receive Date: 20111216
  Receipt Date: 20111208
  Transmission Date: 20120403
  Serious: Yes (Hospitalization)
  Sender: FDA-Public Use
  Company Number: UCM201112-000080

PATIENT
  Age: 69 Year
  Sex: Male

DRUGS (12)
  1. LEVALBUTEROL HCL [Concomitant]
  2. LISINOPRIL [Concomitant]
  3. CARVEDILOL [Concomitant]
  4. EPLERENONE [Concomitant]
  5. BISOPROLOL FUMARATE [Suspect]
     Indication: WHEEZING
     Dosage: 10 MG DAILY
  6. WARFARIN [Concomitant]
  7. PREDNISONE [Concomitant]
  8. FUROSEMIDE [Concomitant]
  9. ATORVASTATIN [Concomitant]
  10. LEVOTHYROXINE SODIUM [Concomitant]
  11. AZITHROMYCIN [Concomitant]
  12. ALBUTEROL SULFATE AND IPRATROPIUM BROMIDE [Concomitant]

REACTIONS (1)
  - BENIGN PROSTATIC HYPERPLASIA [None]
